FAERS Safety Report 4610939-X (Version None)
Quarter: 2005Q1

REPORT INFORMATION
  Report Type: 
  Country: None (occurrence: None)
  Receive Date: 20050315
  Receipt Date: 20050315
  Transmission Date: 20050727
  Serious: Yes (Death)
  Sender: FDA-Public Use
  Company Number: None

PATIENT
  Sex: Male
  Weight: 124.7392 kg

DRUGS (2)
  1. OXYCONTIN [Suspect]
     Indication: PAIN
  2. NEURONTIN [Suspect]
     Indication: PAIN

REACTIONS (2)
  - AMNESIA [None]
  - SOMNOLENCE [None]
